FAERS Safety Report 12620660 (Version 1)
Quarter: 2016Q3

REPORT INFORMATION
  Report Type: Report from Study
  Country: BR (occurrence: BR)
  Receive Date: 20160804
  Receipt Date: 20160804
  Transmission Date: 20161109
  Serious: Yes (Hospitalization)
  Sender: FDA-Public Use
  Company Number: BR-UCBSA-2016028937

PATIENT
  Age: 53 Year
  Sex: Female
  Weight: 67 kg

DRUGS (1)
  1. CERTOLIZUMAB PEGOL [Suspect]
     Active Substance: CERTOLIZUMAB PEGOL
     Indication: RHEUMATOID ARTHRITIS
     Dosage: 400 MG, 2X/MONTH
     Dates: start: 201605, end: 2016

REACTIONS (4)
  - Fall [Recovered/Resolved with Sequelae]
  - Femur fracture [Unknown]
  - Weight increased [Not Recovered/Not Resolved]
  - Drug dose omission [Unknown]

NARRATIVE: CASE EVENT DATE: 20160528
